FAERS Safety Report 12372474 (Version 3)
Quarter: 2016Q4

REPORT INFORMATION
  Report Type: Spontaneous
  Country: DE (occurrence: DE)
  Receive Date: 20160516
  Receipt Date: 20161021
  Transmission Date: 20170207
  Serious: Yes (Hospitalization, Disabling)
  Sender: FDA-Public Use
  Company Number: DE-009507513-1605DEU007788

PATIENT
  Age: 70 Year
  Sex: Male
  Weight: 70 kg

DRUGS (9)
  1. PARITAPREVIR [Suspect]
     Active Substance: PARITAPREVIR
     Dosage: UNK UNK, QD
     Dates: start: 201506, end: 201509
  2. RIBAVIRIN. [Suspect]
     Active Substance: RIBAVIRIN
     Indication: CHRONIC HEPATITIS C
     Dosage: UNK
     Route: 048
     Dates: start: 201506
  3. VIEKIRAX [Suspect]
     Active Substance: OMBITASVIR\PARITAPREVIR\RITONAVIR
     Indication: CHRONIC HEPATITIS C
     Dosage: UNK
     Route: 048
     Dates: start: 201506, end: 201509
  4. PRAVASTATIN. [Concomitant]
     Active Substance: PRAVASTATIN
     Dosage: 10 MG, QD
  5. ACTRAPID [Concomitant]
     Active Substance: INSULIN HUMAN
     Indication: CHRONIC HEPATITIS C
     Dosage: UNK
     Route: 048
     Dates: start: 201506
  6. ACTRAPID [Concomitant]
     Active Substance: INSULIN HUMAN
     Dosage: UNK
     Dates: end: 201609
  7. RIBAVIRIN. [Suspect]
     Active Substance: RIBAVIRIN
     Dosage: UNK
     Route: 048
     Dates: end: 201509
  8. ASPIRIN. [Concomitant]
     Active Substance: ASPIRIN
     Dosage: DOSE 100, QD
  9. OMBITASVIR [Suspect]
     Active Substance: OMBITASVIR
     Dosage: UNK
     Dates: start: 201506, end: 201509

REACTIONS (4)
  - Hypoglycaemia [Recovered/Resolved]
  - Anaemia [Unknown]
  - Syncope [Recovered/Resolved]
  - Hypoglycaemic seizure [Recovered/Resolved]

NARRATIVE: CASE EVENT DATE: 2015
